FAERS Safety Report 5386532-0 (Version None)
Quarter: 2007Q3

REPORT INFORMATION
  Report Type: 
  Country: None (occurrence: None)
  Receive Date: 20070713
  Receipt Date: 20070710
  Transmission Date: 20080115
  Serious: Yes (Hospitalization)
  Sender: FDA-Public Use
  Company Number: JP-ALLERGAN-0707419US

PATIENT
  Sex: Male

DRUGS (4)
  1. ALESION SYRUP [Suspect]
     Indication: RHINITIS ALLERGIC
     Route: 048
     Dates: start: 20070310
  2. MUCODYNE [Concomitant]
     Indication: DRUG USE FOR UNKNOWN INDICATION
     Route: 048
     Dates: start: 20070310
  3. TRANSAMIN [Concomitant]
     Indication: DRUG USE FOR UNKNOWN INDICATION
     Route: 048
     Dates: start: 20070310
  4. ACETAMINOPHEN [Concomitant]
     Indication: PYREXIA

REACTIONS (1)
  - HEPATITIS [None]
